FAERS Safety Report 6529127-5 (Version None)
Quarter: 2010Q1

REPORT INFORMATION
  Report Type: 
  Country: None (occurrence: None)
  Receive Date: 20100107
  Receipt Date: 20091214
  Transmission Date: 20100710
  Serious: Yes (Hospitalization)
  Sender: FDA-Public Use
  Company Number: CHPA2009BR23712

PATIENT
  Age: 71 Year
  Sex: Male
  Weight: 79 kg

DRUGS (2)
  1. NUPERCAINAL (NCH) [Suspect]
     Indication: ANAL FISSURE
     Dosage: 1 APPLICATION, QD
     Route: 054
  2. NUPERCAINAL (NCH) [Suspect]
     Indication: ANORECTAL VARICES

REACTIONS (2)
  - INTENTIONAL DRUG MISUSE [None]
  - SURGERY [None]
